FAERS Safety Report 16721836 (Version 1)
Quarter: 2019Q3

REPORT INFORMATION
  Report Type: Spontaneous
  Country: DE (occurrence: DE)
  Receive Date: 20190820
  Receipt Date: 20190820
  Transmission Date: 20191005
  Serious: Yes (Hospitalization, Other)
  Sender: FDA-Public Use
  Company Number: DE-TEVA-2019-DE-1093219

PATIENT
  Age: 69 Year
  Sex: Female

DRUGS (11)
  1. DEXAMETHASON [Concomitant]
     Active Substance: DEXAMETHASONE
     Dosage: 4 MG, ACCOMPANYING CHEMO
     Route: 065
  2. PERTUZUMAB. [Suspect]
     Active Substance: PERTUZUMAB
     Dosage: NK MG, LAST 01.02.2018
     Route: 042
  3. CARBOPLATIN. [Suspect]
     Active Substance: CARBOPLATIN
     Dosage: NK MG, LAST 01.02.2018
     Route: 042
  4. TRASTUZUMAB. [Suspect]
     Active Substance: TRASTUZUMAB
     Dosage: NK MG, LAST 01.02.2018
     Route: 042
  5. METOCLOPRAMID [Concomitant]
     Active Substance: METOCLOPRAMIDE
     Dosage: AGAINST NAUSEA
     Route: 065
  6. IBUPROFEN. [Concomitant]
     Active Substance: IBUPROFEN
     Dosage: IN CASE OF PAIN
     Route: 065
  7. METOPROLOL. [Concomitant]
     Active Substance: METOPROLOL
     Dosage: 95 MG, 1-0-0.5-0
     Route: 065
  8. ENOXAPARIN [Concomitant]
     Active Substance: ENOXAPARIN
     Dosage: 100 MG/ML, NK, PRE-FILLED SYRINGES
     Route: 058
  9. PACLITAXEL. [Suspect]
     Active Substance: PACLITAXEL
     Dosage: NK MG, LAST 01.02.2018
     Route: 042
  10. PANTOPRAZOL [Concomitant]
     Active Substance: PANTOPRAZOLE SODIUM
     Dosage: IN CASE OF STOMACH DISCOMFORT
     Route: 065
  11. ONDANSETRON [Concomitant]
     Active Substance: ONDANSETRON
     Dosage: 8 MG, ACCOMPANYING CHEMO
     Route: 065

REACTIONS (3)
  - Diarrhoea [Unknown]
  - Hypotension [Unknown]
  - Loss of consciousness [Unknown]
